FAERS Safety Report 12767117 (Version 1)
Quarter: 2016Q3

REPORT INFORMATION
  Report Type: Spontaneous
  Country: IE (occurrence: IE)
  Receive Date: 20160921
  Receipt Date: 20160921
  Transmission Date: 20161109
  Serious: Yes (Hospitalization)
  Sender: FDA-Public Use
  Company Number: IE-PFIZER INC-2016439354

PATIENT
  Sex: Female

DRUGS (1)
  1. SUTENT [Suspect]
     Active Substance: SUNITINIB MALATE
     Indication: METASTATIC RENAL CELL CARCINOMA
     Dosage: 50 UNKNOWN UNIT, CYCLIC (4/2 AS SCHEDULE)
     Dates: start: 20101115, end: 20110601

REACTIONS (6)
  - Epistaxis [Recovered/Resolved]
  - Syncope [Unknown]
  - Hypertension [Not Recovered/Not Resolved]
  - Disease progression [Unknown]
  - Dysuria [Unknown]
  - Metastatic renal cell carcinoma [Unknown]
